FAERS Safety Report 9135850 (Version 1)
Quarter: 2013Q1

REPORT INFORMATION
  Report Type: Spontaneous
  Country: US (occurrence: US)
  Receive Date: 20130304
  Receipt Date: 20130304
  Transmission Date: 20140127
  Serious: No
  Sender: FDA-Public Use
  Company Number: US-ABBOTT-12P-163-1001889-00

PATIENT
  Sex: Male
  Weight: 84.44 kg

DRUGS (6)
  1. ANDROGEL [Suspect]
     Indication: BLOOD TESTOSTERONE DECREASED
     Dates: start: 201207
  2. WELCHOL [Suspect]
     Indication: BLOOD CHOLESTEROL ABNORMAL
     Dates: start: 201209
  3. UNSPECIFIED INGREDIENT [Suspect]
     Indication: IMMUNE SYSTEM DISORDER
  4. PERCOCET [Concomitant]
     Indication: PAIN
  5. LOVAZA [Concomitant]
     Indication: BLOOD TRIGLYCERIDES INCREASED
  6. VALIUM [Concomitant]
     Indication: INSOMNIA

REACTIONS (4)
  - Arthralgia [Not Recovered/Not Resolved]
  - Fatigue [Not Recovered/Not Resolved]
  - Aggression [Not Recovered/Not Resolved]
  - Medication error [Unknown]
